FAERS Safety Report 5024707-0 (Version None)
Quarter: 2006Q2

REPORT INFORMATION
  Report Type: 
  Country: None (occurrence: None)
  Receive Date: 20060607
  Receipt Date: 20060601
  Transmission Date: 20061013
  Serious: Yes (Life-Threatening)
  Sender: FDA-Public Use
  Company Number: 2006-143423-NL

PATIENT
  Age: 82 Year
  Sex: Female

DRUGS (8)
  1. DANAPAROID SODIUM [Suspect]
     Indication: DISSEMINATED INTRAVASCULAR COAGULATION
     Dosage: 2500 ANTI_XA BID INTRAVENOUS DRIP
     Route: 041
     Dates: start: 20060201, end: 20060209
  2. PRIMAXIN [Concomitant]
  3. IMMUNE GLOBULIN INTRAVENOUS (HUMAN) [Concomitant]
  4. ANTITHROMBIN III [Concomitant]
  5. CEFTAZIDIME [Concomitant]
  6. CLINDAMYCIN [Concomitant]
  7. MICAFUNGIN SODIUM [Concomitant]
  8. ULINASTATIN [Concomitant]

REACTIONS (2)
  - ANAEMIA [None]
  - POSTOPERATIVE INFECTION [None]
